FAERS Safety Report 6178413-X (Version None)
Quarter: 2009Q2

REPORT INFORMATION
  Report Type: 
  Country: None (occurrence: None)
  Receive Date: 20090504
  Receipt Date: 20080324
  Transmission Date: 20091009
  Serious: No
  Sender: FDA-Public Use
  Company Number: US-ALEXION-A200800062

PATIENT

DRUGS (8)
  1. SOLIRIS [Suspect]
     Indication: PAROXYSMAL NOCTURNAL HAEMOGLOBINURIA
     Dosage: 600 MG, SINGLE
     Route: 042
     Dates: start: 20080320, end: 20080320
  2. PREDNISONE [Concomitant]
     Dosage: 60 MG, QD
     Route: 048
  3. ASPIRIN [Concomitant]
     Dosage: 325 MG, QD
     Route: 048
  4. SIMVASTATIN [Concomitant]
     Dosage: 40 MG, QD
     Route: 048
  5. LOPRESSOR [Concomitant]
     Dosage: 50 MG, BID
     Route: 048
  6. LASIX [Concomitant]
     Dosage: 40 MG, QD
     Route: 048
  7. PLAVIX [Concomitant]
     Dosage: 75 MG, QD
     Route: 048
  8. ALLOPURINOL [Concomitant]
     Dosage: 150 MG, QD
     Route: 048

REACTIONS (1)
  - MUSCULAR WEAKNESS [None]
